FAERS Safety Report 6642842-8 (Version None)
Quarter: 2010Q1

REPORT INFORMATION
  Report Type: 
  Country: None (occurrence: None)
  Receive Date: 20100319
  Receipt Date: 20100315
  Transmission Date: 20100710
  Serious: Yes (Death, Hospitalization, Other)
  Sender: FDA-Public Use
  Company Number: US-CELGENEUS-163-20785-10030046

PATIENT
  Sex: Male

DRUGS (2)
  1. THALOMID [Suspect]
     Indication: MULTIPLE MYELOMA
     Route: 048
     Dates: start: 20090101
  2. THALOMID [Suspect]
     Dosage: 100-200 MG
     Route: 048
     Dates: start: 20050201, end: 20061101

REACTIONS (11)
  - ATRIAL FIBRILLATION [None]
  - DELIRIUM [None]
  - ENTEROCOCCAL INFECTION [None]
  - FEBRILE NEUTROPENIA [None]
  - HYPOTENSION [None]
  - ISCHAEMIC HEPATITIS [None]
  - MALIGNANT NEOPLASM PROGRESSION [None]
  - MULTIPLE MYELOMA [None]
  - PAIN [None]
  - PANCYTOPENIA [None]
  - RENAL FAILURE CHRONIC [None]
